FAERS Safety Report 5688169-2 (Version None)
Quarter: 2008Q1

REPORT INFORMATION
  Report Type: 
  Country: None (occurrence: None)
  Receive Date: 20080327
  Receipt Date: 20080315
  Transmission Date: 20080703
  Serious: Yes (Life-Threatening, Hospitalization)
  Sender: FDA-Public Use
  Company Number: JPI-P-003222

PATIENT
  Age: 16 Year
  Sex: Female

DRUGS (2)
  1. LUVOX [Suspect]
     Indication: EATING DISORDER
     Dosage: (75 MG, 1 D), ORAL; (125 MMG, 1 D), ORAL
     Route: 048
     Dates: end: 20080220
  2. LUVOX [Suspect]
     Indication: EATING DISORDER
     Dosage: (75 MG, 1 D), ORAL; (125 MMG, 1 D), ORAL
     Route: 048
     Dates: start: 20080221, end: 20080225

REACTIONS (2)
  - CARDIAC ARREST [None]
  - LIVER FUNCTION TEST ABNORMAL [None]
